FAERS Safety Report 18469793 (Version 2)
Quarter: 2021Q1

REPORT INFORMATION
  Report Type: Spontaneous
  Country: US (occurrence: US)
  Receive Date: 20201105
  Receipt Date: 20210104
  Transmission Date: 20210419
  Serious: Yes (Life-Threatening, Hospitalization)
  Sender: FDA-Public Use
  Company Number: US-TEVA-2020-US-1843966

PATIENT
  Age: 64 Year
  Sex: Male

DRUGS (1)
  1. PROPRANOLOL [Suspect]
     Active Substance: PROPRANOLOL HYDROCHLORIDE
     Indication: HYPERTENSION
     Route: 065

REACTIONS (9)
  - Bradycardia [Recovering/Resolving]
  - Encephalopathy [Unknown]
  - Hypotension [Recovering/Resolving]
  - Overdose [Recovering/Resolving]
  - Syncope [Recovered/Resolved]
  - Hyperglycaemia [Recovering/Resolving]
  - Hyperkalaemia [Recovering/Resolving]
  - Cardiac arrest [Recovered/Resolved]
  - Toxicity to various agents [Recovering/Resolving]
